FAERS Safety Report 16973815 (Version 4)
Quarter: 2020Q1

REPORT INFORMATION
  Report Type: Spontaneous
  Country: JP (occurrence: JP)
  Receive Date: 20191030
  Receipt Date: 20200124
  Transmission Date: 20200409
  Serious: Yes (Hospitalization, Other)
  Sender: FDA-Public Use
  Company Number: JP-BAYER-2019-195793

PATIENT
  Age: 51 Year
  Sex: Female
  Weight: 52 kg

DRUGS (18)
  1. PREDNISOLONE. [Concomitant]
     Active Substance: PREDNISOLONE
  2. REBAMIPIDE KUNIHIRO [Concomitant]
  3. MOSAPRIDE CITRATE [Concomitant]
     Active Substance: MOSAPRIDE CITRATE
  4. BETAFERON [Suspect]
     Active Substance: INTERFERON BETA-1B
     Indication: MULTIPLE SCLEROSIS RELAPSE PROPHYLAXIS
     Dosage: 0.5ML, ONCE EVERY TWO DAYS
     Route: 058
     Dates: start: 20191024, end: 20191105
  5. AMLODIPINE AMEL [Concomitant]
     Active Substance: AMLODIPINE BESYLATE
     Dosage: DAILY DOSE 5 MG
  6. CALFINA [ALFACALCIDOL] [Concomitant]
     Active Substance: ALFACALCIDOL
  7. L-ASPARAGINE [Concomitant]
     Active Substance: ASPARAGINE
  8. AMITIZA [Concomitant]
     Active Substance: LUBIPROSTONE
  9. BROTIZOLAM [Concomitant]
     Active Substance: BROTIZOLAM
  10. BETAFERON [Suspect]
     Active Substance: INTERFERON BETA-1B
     Indication: MULTIPLE SCLEROSIS RELAPSE PROPHYLAXIS
     Dosage: 0.5ML, ONCE EVERY TWO DAYS
     Route: 058
     Dates: start: 201801
  11. MARZULENE-S [Concomitant]
     Active Substance: GLUTAMINE\SODIUM GUALENATE
  12. MIRTAZAPINE. [Concomitant]
     Active Substance: MIRTAZAPINE
     Dosage: UNK
     Dates: end: 20191020
  13. LORAZEPAM. [Concomitant]
     Active Substance: LORAZEPAM
  14. LOXOPROFEN NA [Concomitant]
     Active Substance: LOXOPROFEN SODIUM
     Dosage: DAILY DOSE 180 MG
  15. ZOLPIDEM TARTRATE NISSIN [Concomitant]
  16. PREDNISOLONE. [Concomitant]
     Active Substance: PREDNISOLONE
     Dosage: DAILY DOSE 9 MG
  17. PEROSPIRONE HYDROCHLORIDE DIHYDRATE [Concomitant]
     Dosage: DAILY DOSE 2 MG
  18. LANSOPRAZOLE. [Concomitant]
     Active Substance: LANSOPRAZOLE

REACTIONS (8)
  - Pulmonary hypertension [Unknown]
  - Incorrect dose administered [None]
  - Acute respiratory failure [Unknown]
  - Cardiac failure acute [Unknown]
  - Pneumonia bacterial [None]
  - Dyspnoea [Unknown]
  - Pulmonary congestion [Unknown]
  - Chest pain [Unknown]

NARRATIVE: CASE EVENT DATE: 20191021
